FAERS Safety Report 8348734-0 (Version None)
Quarter: 2012Q2

REPORT INFORMATION
  Report Type: 
  Country: None (occurrence: None)
  Receive Date: 20120510
  Receipt Date: 20120503
  Transmission Date: 20120825
  Serious: Yes (Other)
  Sender: FDA-Public Use
  Company Number: US-PFIZER INC-2012024458

PATIENT
  Sex: Female

DRUGS (3)
  1. SUTENT [Suspect]
     Indication: UTERINE CANCER
     Dosage: 50 MG, 1X/DAY, X 28DAYS, OFF 14 DAYS
     Route: 048
     Dates: start: 20120124, end: 20120126
  2. TOPROL-XL [Concomitant]
     Dosage: UNK, DAILY
  3. XANAX [Concomitant]
     Indication: ANXIETY
     Dosage: UNK, AS NEEDED

REACTIONS (3)
  - UTERINE CANCER [None]
  - GASTROINTESTINAL HAEMORRHAGE [None]
  - DISEASE PROGRESSION [None]
